FAERS Safety Report 9890731 (Version 1)
Quarter: 2014Q1

REPORT INFORMATION
  Report Type: Spontaneous
  Country: US (occurrence: None)
  Receive Date: 20140210
  Receipt Date: 20140210
  Transmission Date: 20141002
  Serious: No
  Sender: FDA-Public Use
  Company Number: None

PATIENT
  Age: 52 Year
  Sex: Male
  Weight: 78.47 kg

DRUGS (9)
  1. EGRIFTA [Suspect]
     Indication: LIPODYSTROPHY ACQUIRED
     Route: 058
  2. ZOLOFT [Concomitant]
  3. PROPANOLOL [Concomitant]
  4. TRAZODONE [Concomitant]
  5. TRUVADA [Concomitant]
  6. OMEPRAZOLE [Concomitant]
  7. PROAIR [Concomitant]
  8. VIRAMUNE XR [Suspect]
  9. VALTREX [Concomitant]

REACTIONS (1)
  - Depression [None]
